FAERS Safety Report 16875213 (Version 1)
Quarter: 2019Q4

REPORT INFORMATION
  Report Type: Spontaneous
  Country: US (occurrence: US)
  Receive Date: 20191001
  Receipt Date: 20191001
  Transmission Date: 20200122
  Serious: No
  Sender: FDA-Public Use
  Company Number: US-TEVA-2019-US-1116410

PATIENT
  Sex: Female

DRUGS (2)
  1. ESOMEPRAZOLE DELAYED RELEASE CAPSULE [Suspect]
     Active Substance: ESOMEPRAZOLE MAGNESIUM
     Route: 048
  2. ESOMEPRAZOLE DELAYED RELEASE CAPSULE [Suspect]
     Active Substance: ESOMEPRAZOLE MAGNESIUM
     Route: 048

REACTIONS (2)
  - Throat irritation [Unknown]
  - Product quality issue [Unknown]
